FAERS Safety Report 5284645-5 (Version None)
Quarter: 2007Q2

REPORT INFORMATION
  Report Type: 
  Country: None (occurrence: None)
  Receive Date: 20070403
  Receipt Date: 20070322
  Transmission Date: 20071010
  Serious: Yes (Hospitalization)
  Sender: FDA-Public Use
  Company Number: NL-ROCHE-483703

PATIENT
  Age: 76 Year
  Sex: Male

DRUGS (5)
  1. CAPECITABINE [Suspect]
     Dosage: 50% DOSE DATE OF LAST CYCLE (CYCLE 7): 22 JANUARY 2007 STOPPED AFTER RECOVERY.
     Route: 048
     Dates: start: 20060809
  2. BEVACIZUMAB [Suspect]
     Dosage: DATE OF LAST CYCLE (CYCLE 7): 22 JANUARY 2007
     Route: 042
     Dates: start: 20060809
  3. OXALIPLATIN [Suspect]
     Dosage: STOPPED IN THE 7TH CYCLE.
     Route: 042
     Dates: start: 20060809
  4. CETUXIMAB [Suspect]
     Dosage: DATE OF LAST CYCLE (CYCLE 7): 29 JANUARY 2007
     Route: 042
     Dates: start: 20060809
  5. OMEPRAZOLE [Concomitant]

REACTIONS (1)
  - MALLORY-WEISS SYNDROME [None]
